FAERS Safety Report 13411085 (Version 2)
Quarter: 2017Q3

REPORT INFORMATION
  Report Type: Spontaneous
  Country: US (occurrence: US)
  Receive Date: 20170406
  Receipt Date: 20170718
  Transmission Date: 20171127
  Serious: Yes (Other)
  Sender: FDA-Public Use
  Company Number: US-JNJFOC-20170306656

PATIENT
  Age: 15 Year
  Sex: Male

DRUGS (7)
  1. RISPERDAL [Suspect]
     Active Substance: RISPERIDONE
     Indication: ATTENTION DEFICIT/HYPERACTIVITY DISORDER
     Route: 048
     Dates: start: 200801
  2. RISPERDAL [Suspect]
     Active Substance: RISPERIDONE
     Indication: IMPULSIVE BEHAVIOUR
     Dosage: 1 TABLET AT MORNING AND 2 TABLETS AT BEDTIME.
     Route: 048
     Dates: start: 20090407, end: 20100708
  3. RISPERDAL [Suspect]
     Active Substance: RISPERIDONE
     Indication: IMPULSIVE BEHAVIOUR
     Route: 048
     Dates: start: 200801
  4. RISPERDAL [Suspect]
     Active Substance: RISPERIDONE
     Indication: PSYCHOMOTOR HYPERACTIVITY
     Route: 048
     Dates: start: 200801
  5. RISPERDAL [Suspect]
     Active Substance: RISPERIDONE
     Indication: ATTENTION DEFICIT/HYPERACTIVITY DISORDER
     Dosage: 1 TABLET AT MORNING AND 2 TABLETS AT BEDTIME.
     Route: 048
     Dates: start: 20090407, end: 20100708
  6. INVEGA [Suspect]
     Active Substance: PALIPERIDONE
     Indication: PRODUCT USED FOR UNKNOWN INDICATION
     Route: 048
  7. RISPERDAL [Suspect]
     Active Substance: RISPERIDONE
     Indication: PSYCHOMOTOR HYPERACTIVITY
     Dosage: 1 TABLET AT MORNING AND 2 TABLETS AT BEDTIME.
     Route: 048
     Dates: start: 20090407, end: 20100708

REACTIONS (2)
  - Breast disorder [Unknown]
  - Obesity [Unknown]

NARRATIVE: CASE EVENT DATE: 20091212
